FAERS Safety Report 24066514 (Version 2)
Quarter: 2024Q4

REPORT INFORMATION
  Report Type: Spontaneous
  Country: JP (occurrence: JP)
  Receive Date: 20240709
  Receipt Date: 20241028
  Transmission Date: 20250114
  Serious: Yes (Hospitalization, Other)
  Sender: BAYER HEALTHCARE PHARMACEUTICALS INC.
  Company Number: JP-BAYER-2024A097245

PATIENT
  Age: 71 Year
  Sex: Male

DRUGS (2)
  1. NUBEQA [Suspect]
     Active Substance: DAROLUTAMIDE
     Indication: Hormone-dependent prostate cancer
     Dosage: 600 MG, BID
     Dates: start: 20240118, end: 20240704
  2. DOCETAXEL [Suspect]
     Active Substance: DOCETAXEL
     Indication: Hormone-dependent prostate cancer
     Dosage: UNK
     Dates: start: 202401

REACTIONS (8)
  - Oedema [Recovering/Resolving]
  - Decreased appetite [Not Recovered/Not Resolved]
  - Inappropriate antidiuretic hormone secretion [None]
  - Ascites [None]
  - Pleural effusion [None]
  - Liver function test increased [Recovering/Resolving]
  - Loss of personal independence in daily activities [None]
  - Malnutrition [None]

NARRATIVE: CASE EVENT DATE: 20240610
